FAERS Safety Report 4906215-8 (Version None)
Quarter: 2006Q1

REPORT INFORMATION
  Report Type: 
  Country: None (occurrence: None)
  Receive Date: 20060207
  Receipt Date: 20060123
  Transmission Date: 20060701
  Serious: Yes (Other)
  Sender: FDA-Public Use
  Company Number: 2006000179

PATIENT
  Age: 62 Year

DRUGS (2)
  1. TARCEVA [Suspect]
     Indication: BRONCHIAL CARCINOMA
     Dosage: ORAL
     Route: 048
     Dates: start: 20051128
  2. LORAZEPAM [Concomitant]

REACTIONS (1)
  - HEPATORENAL SYNDROME [None]
